FAERS Safety Report 20023562 (Version 9)
Quarter: 2025Q1

REPORT INFORMATION
  Report Type: Spontaneous
  Country: JP (occurrence: JP)
  Receive Date: 20211102
  Receipt Date: 20250326
  Transmission Date: 20250409
  Serious: Yes (Life-Threatening, Hospitalization, Disabling, Other)
  Sender: BRISTOL-MYERS SQUIBB COMPANY
  Company Number: JP-BRISTOL-MYERS SQUIBB COMPANY-BMS-2020-111121

PATIENT
  Age: 81 Year
  Sex: Female

DRUGS (1)
  1. OPDIVO [Suspect]
     Active Substance: NIVOLUMAB
     Indication: Malignant melanoma
     Route: 041
     Dates: start: 20201117, end: 20201201

REACTIONS (4)
  - Myasthenia gravis crisis [Unknown]
  - Immune-mediated myositis [Recovering/Resolving]
  - Autonomic neuropathy [Recovered/Resolved]
  - Immune-mediated myocarditis [Unknown]

NARRATIVE: CASE EVENT DATE: 20201130
